FAERS Safety Report 4642078-6 (Version None)
Quarter: 2005Q2

REPORT INFORMATION
  Report Type: 
  Country: None (occurrence: None)
  Receive Date: 20050420
  Receipt Date: 20050407
  Transmission Date: 20051028
  Serious: Yes (Hospitalization, Other)
  Sender: FDA-Public Use
  Company Number: 2005034242

PATIENT
  Age: 23 Year
  Sex: Female

DRUGS (1)
  1. GEODON [Suspect]
     Indication: SEDATION
     Dosage: SEE IMAGE
     Route: 048
     Dates: start: 20050215

REACTIONS (5)
  - AGITATION [None]
  - DELUSION [None]
  - EYE LUXATION [None]
  - NERVE INJURY [None]
  - SELF INJURIOUS BEHAVIOUR [None]
